FAERS Safety Report 5329799-7 (Version None)
Quarter: 2007Q2

REPORT INFORMATION
  Report Type: 
  Country: None (occurrence: None)
  Receive Date: 20070517
  Receipt Date: 20070517
  Transmission Date: 20071010
  Serious: Yes (Other)
  Sender: FDA-Public Use
  Company Number: None

PATIENT
  Age: 76 Year
  Sex: Female
  Weight: 58.0604 kg

DRUGS (8)
  1. AMLODIPINE (GENERIC) BRAND UNKNOWN [Suspect]
     Indication: HYPERTENSION
     Dosage: ONE TIME PO QD
     Route: 048
     Dates: start: 20061201
  2. CELEBREX [Concomitant]
  3. LISINOPRIL [Concomitant]
  4. ATENOLOL [Concomitant]
  5. LORAZEPAM [Concomitant]
  6. NASONEX [Concomitant]
  7. ASTELIN [Concomitant]
  8. ALLEGRA [Concomitant]

REACTIONS (2)
  - DIZZINESS [None]
  - PHARMACEUTICAL PRODUCT COMPLAINT [None]
